FAERS Safety Report 12929930 (Version 1)
Quarter: 2016Q4

REPORT INFORMATION
  Report Type: Spontaneous
  Country: US (occurrence: US)
  Receive Date: 20161110
  Receipt Date: 20161110
  Transmission Date: 20170207
  Serious: Yes (Life-Threatening, Hospitalization, Disabling)
  Sender: FDA-Public Use
  Company Number: None

PATIENT
  Age: 40 Year
  Sex: Female
  Weight: 54 kg

DRUGS (10)
  1. PREDNISONE. [Concomitant]
     Active Substance: PREDNISONE
  2. BENADRYL [Concomitant]
     Active Substance: DIPHENHYDRAMINE HYDROCHLORIDE
  3. REMICADE [Suspect]
     Active Substance: INFLIXIMAB
     Indication: COLITIS ULCERATIVE
     Dates: start: 20140516, end: 20140530
  4. CLOBETASOL [Concomitant]
     Active Substance: CLOBETASOL
  5. ENTYVIO [Concomitant]
     Active Substance: VEDOLIZUMAB
  6. TYLENOL [Concomitant]
     Active Substance: ACETAMINOPHEN
  7. WELLBUTRIN XL [Concomitant]
     Active Substance: BUPROPION HYDROCHLORIDE
  8. MIRENA [Concomitant]
     Active Substance: LEVONORGESTREL
  9. ITRACONAZOLE (SPORANOX) [Concomitant]
  10. MIRTAZPINE (REMERON) [Concomitant]

REACTIONS (17)
  - Abdominal pain upper [None]
  - Abdominal pain lower [None]
  - Histoplasmosis disseminated [None]
  - Streptococcal infection [None]
  - Hepatic failure [None]
  - Vomiting [None]
  - Staphylococcal infection [None]
  - Renal disorder [None]
  - Nausea [None]
  - Blood urine present [None]
  - Cardiac disorder [None]
  - Influenza like illness [None]
  - Histiocytosis haematophagic [None]
  - Retroperitoneal haematoma [None]
  - Escherichia infection [None]
  - Pulmonary oedema [None]
  - Haematemesis [None]

NARRATIVE: CASE EVENT DATE: 20140530
